FAERS Safety Report 9828673 (Version 3)
Quarter: 2014Q1

REPORT INFORMATION
  Report Type: Spontaneous
  Country: US (occurrence: US)
  Receive Date: 20140117
  Receipt Date: 20140320
  Transmission Date: 20141002
  Serious: Yes (Death, Hospitalization, Disabling, Other)
  Sender: FDA-Public Use
  Company Number: US-CELGENEUS-163-21880-13063229

PATIENT
  Age: 80 Year
  Sex: Male
  Weight: 90.35 kg

DRUGS (19)
  1. REVLIMID [Suspect]
     Indication: PLASMA CELL MYELOMA
     Dosage: 10 MILLIGRAM
     Route: 048
     Dates: start: 20130108, end: 20130222
  2. REVLIMID [Suspect]
     Dosage: 10 MILLIGRAM
     Route: 048
     Dates: start: 20130304, end: 20130318
  3. POMALYST [Suspect]
     Indication: PLASMA CELL MYELOMA
     Dosage: 3 MILLIGRAM
     Route: 048
     Dates: start: 201306
  4. ZOMETA [Concomitant]
     Indication: PRODUCT USED FOR UNKNOWN INDICATION
     Dosage: 4MG/100ML
     Route: 065
  5. ZOMETA [Concomitant]
     Dosage: 4MG/5ML
     Route: 041
  6. OMEPRAZOLE [Concomitant]
     Indication: PRODUCT USED FOR UNKNOWN INDICATION
     Route: 065
  7. OMEPRAZOLE [Concomitant]
     Dosage: 40 MILLIGRAM
     Route: 065
  8. PRAVASTATIN SODIUM [Concomitant]
     Indication: BLOOD CHOLESTEROL
     Dosage: 20 MILLIGRAM
     Route: 048
  9. ACYCLOVIR [Concomitant]
     Indication: PRODUCT USED FOR UNKNOWN INDICATION
     Route: 048
  10. ACYCLOVIR [Concomitant]
     Dosage: 800 MILLIGRAM
     Route: 048
  11. VITAMINS [Concomitant]
     Indication: PRODUCT USED FOR UNKNOWN INDICATION
     Route: 048
  12. VITAMIN D [Concomitant]
     Indication: PRODUCT USED FOR UNKNOWN INDICATION
     Dosage: 1000 UNIT
     Route: 065
  13. ARANESP [Concomitant]
     Indication: ANAEMIA
     Dosage: 100MCG/MG
     Route: 065
     Dates: start: 201212
  14. ARANESP [Concomitant]
     Dosage: 200MCG/0.4ML
     Route: 058
  15. LEVOTHYROXINE [Concomitant]
     Indication: PRODUCT USED FOR UNKNOWN INDICATION
     Dosage: 100 MICROGRAM
     Route: 048
  16. ASPIRIN [Concomitant]
     Indication: PRODUCT USED FOR UNKNOWN INDICATION
     Dosage: 325 MILLIGRAM
     Route: 048
  17. NITROQUICK [Concomitant]
     Indication: CHEST PAIN
     Route: 058
  18. OCUVITE [Concomitant]
     Indication: PRODUCT USED FOR UNKNOWN INDICATION
     Route: 048
  19. CEFTRIAXONE [Concomitant]
     Indication: PERITONITIS BACTERIAL
     Route: 065
     Dates: start: 201309

REACTIONS (4)
  - Hepatic cirrhosis [Fatal]
  - Alpha haemolytic streptococcal infection [Recovered/Resolved]
  - Platelet count decreased [Recovering/Resolving]
  - Anaemia [Unknown]
